FAERS Safety Report 4995839-8 (Version None)
Quarter: 2006Q2

REPORT INFORMATION
  Report Type: 
  Country: None (occurrence: None)
  Receive Date: 20060504
  Receipt Date: 20060419
  Transmission Date: 20061013
  Serious: Yes (Disabling)
  Sender: FDA-Public Use
  Company Number: 34485

PATIENT
  Age: 67 Year
  Sex: Female

DRUGS (2)
  1. TIMOLOL MALEATE [Suspect]
     Dosage: OPHT
     Route: 047
     Dates: start: 20060325
  2. LATANOPROST [Concomitant]

REACTIONS (2)
  - DEAFNESS UNILATERAL [None]
  - DIZZINESS [None]
